FAERS Safety Report 20492841 (Version 7)
Quarter: 2025Q1

REPORT INFORMATION
  Report Type: Report from Study
  Country: CA (occurrence: CA)
  Receive Date: 20220219
  Receipt Date: 20250224
  Transmission Date: 20250409
  Serious: No
  Sender: ROCHE
  Company Number: CA-ROCHE-3029036

PATIENT
  Sex: Female

DRUGS (2)
  1. OCREVUS [Suspect]
     Active Substance: OCRELIZUMAB
     Indication: Relapsing-remitting multiple sclerosis
     Dosage: CONCENTRATE FOR INTRAVENOUS INFUSION, 300 MG AT DAY 0 AND 14, THEN 600 MG EVERY 6 MONTH
     Route: 042
     Dates: start: 20220209
  2. OCREVUS [Suspect]
     Active Substance: OCRELIZUMAB
     Dosage: CONCENTRATE FOR INTRAVENOUS INFUSION, 300 MG AT DAY 0 AND 14, THEN 600 MG EVERY 6 MONTH
     Route: 042

REACTIONS (5)
  - Oral herpes [Recovering/Resolving]
  - Urinary tract infection [Unknown]
  - Nasopharyngitis [Not Recovered/Not Resolved]
  - Lower respiratory tract infection [Not Recovered/Not Resolved]
  - Sinusitis [Not Recovered/Not Resolved]
